FAERS Safety Report 11840144 (Version 3)
Quarter: 2016Q1

REPORT INFORMATION
  Report Type: Spontaneous
  Country: DE (occurrence: JP)
  Receive Date: 20151216
  Receipt Date: 20160119
  Transmission Date: 20160525
  Serious: Yes (Death, Hospitalization)
  Sender: FDA-Public Use
  Company Number: JP-BRACCO-009719

PATIENT
  Age: 67 Year
  Sex: Male

DRUGS (3)
  1. SELOKEEN [Suspect]
     Active Substance: METOPROLOL
     Indication: COMPUTERISED TOMOGRAM CORONARY ARTERY
     Route: 048
     Dates: start: 20151201
  2. MAINTATE [Suspect]
     Active Substance: BISOPROLOL FUMARATE
     Indication: COMPUTERISED TOMOGRAM CORONARY ARTERY
     Route: 048
     Dates: start: 20151201
  3. IOPAMIRON [Suspect]
     Active Substance: IOPAMIDOL
     Indication: COMPUTERISED TOMOGRAM CORONARY ARTERY
     Route: 042
     Dates: start: 20151201, end: 20151201

REACTIONS (2)
  - Ventricular tachycardia [Fatal]
  - Cardiac failure acute [Fatal]

NARRATIVE: CASE EVENT DATE: 20151201
